FAERS Safety Report 7225695-9 (Version None)
Quarter: 2011Q1

REPORT INFORMATION
  Report Type: 
  Country: None (occurrence: None)
  Receive Date: 20110110
  Receipt Date: 20110110
  Transmission Date: 20110831
  Serious: Yes (Other)
  Sender: FDA-Public Use
  Company Number: None

PATIENT
  Age: 33 Year
  Sex: Male
  Weight: 90.7194 kg

DRUGS (2)
  1. AVASTIN [Suspect]
     Indication: METASTASES TO LIVER
     Dates: start: 20100401, end: 20100801
  2. AVASTIN [Suspect]
     Indication: COLORECTAL CANCER METASTATIC
     Dates: start: 20100401, end: 20100801

REACTIONS (1)
  - NASAL SEPTUM DISORDER [None]
